FAERS Safety Report 11837009 (Version 1)
Quarter: 2015Q4

REPORT INFORMATION
  Report Type: Report from Study
  Country: CN (occurrence: CN)
  Receive Date: 20151215
  Receipt Date: 20151215
  Transmission Date: 20160305
  Serious: Yes (Hospitalization, Other)
  Sender: FDA-Public Use
  Company Number: CN-GILEAD-2015-0188179

PATIENT
  Age: 49 Year
  Sex: Male

DRUGS (1)
  1. ADEFOVIR DIPIVOXIL. [Suspect]
     Active Substance: ADEFOVIR DIPIVOXIL
     Indication: CHRONIC HEPATITIS B
     Dosage: 10 MG, BID
     Route: 065

REACTIONS (8)
  - Gait disturbance [Unknown]
  - Osteoporosis [Unknown]
  - Arthralgia [Unknown]
  - Intervertebral disc protrusion [Unknown]
  - Hypophosphataemia [Unknown]
  - Osteomalacia [Unknown]
  - Back pain [Unknown]
  - Fanconi syndrome [Unknown]

NARRATIVE: CASE EVENT DATE: 201211
